FAERS Safety Report 25262952 (Version 1)
Quarter: 2025Q2

REPORT INFORMATION
  Report Type: Spontaneous
  Country: JP (occurrence: JP)
  Receive Date: 20250502
  Receipt Date: 20250502
  Transmission Date: 20250716
  Serious: Yes (Hospitalization, Other)
  Sender: OXFORD PHARMACEUTICALS
  Company Number: JP-Oxford Pharmaceuticals, LLC-2176035

PATIENT
  Age: 4 Decade
  Sex: Male

DRUGS (1)
  1. LEVETIRACETAM [Suspect]
     Active Substance: LEVETIRACETAM
     Indication: Seizure

REACTIONS (1)
  - Rhabdomyolysis [Unknown]
